FAERS Safety Report 8216850-X (Version None)
Quarter: 2012Q1

REPORT INFORMATION
  Report Type: 
  Country: None (occurrence: None)
  Receive Date: 20120316
  Receipt Date: 20120309
  Transmission Date: 20120608
  Serious: Yes (Other)
  Sender: FDA-Public Use
  Company Number: GB-ASTRAZENECA-2012SE16403

PATIENT
  Age: 80 Year
  Sex: Male
  Weight: 94 kg

DRUGS (10)
  1. OMEPRAZOLE [Concomitant]
     Dates: start: 20111024
  2. WARFARIN SODIUM [Concomitant]
     Dates: start: 20120210
  3. ROSUVASTATIN [Suspect]
     Route: 048
     Dates: start: 20111124, end: 20111222
  4. ROSUVASTATIN [Suspect]
     Route: 048
     Dates: start: 20120227
  5. DIGOXIN [Concomitant]
     Dates: start: 20111024
  6. AMOXICILLIN [Concomitant]
     Dates: start: 20120206, end: 20120211
  7. ATORVASTATIN [Concomitant]
     Dates: start: 20120206
  8. FLUCLOXACILLIN [Concomitant]
     Dates: start: 20111121, end: 20111128
  9. ACETAMINOPHEN [Concomitant]
     Dates: start: 20111024, end: 20111219
  10. WARFARIN SODIUM [Concomitant]
     Dates: start: 20111124, end: 20120118

REACTIONS (1)
  - RASH ERYTHEMATOUS [None]
